FAERS Safety Report 14692694 (Version 3)
Quarter: 2019Q1

REPORT INFORMATION
  Report Type: Report from Study
  Country: JP (occurrence: JP)
  Receive Date: 20180329
  Receipt Date: 20190221
  Transmission Date: 20190417
  Serious: Yes (Death, Hospitalization, Other)
  Sender: FDA-Public Use
  Company Number: JP-INCYTE CORPORATION-2018IN000892

PATIENT

DRUGS (21)
  1. JAKAVI [Suspect]
     Active Substance: RUXOLITINIB
     Indication: CHRONIC MYELOID LEUKAEMIA
     Dosage: 5 MG, BID
     Route: 048
     Dates: start: 20160209, end: 20160216
  2. JAKAVI [Suspect]
     Active Substance: RUXOLITINIB
     Dosage: 25 MG, QD
     Route: 048
     Dates: start: 20160329, end: 20160425
  3. HYDREA [Concomitant]
     Active Substance: HYDROXYUREA
     Indication: CHRONIC MYELOID LEUKAEMIA
     Dosage: 1000 MG, UNK
     Route: 048
     Dates: start: 20160709, end: 20160715
  4. HYDREA [Concomitant]
     Active Substance: HYDROXYUREA
     Dosage: 2000 MG, UNK
     Route: 048
     Dates: start: 20160716, end: 20160722
  5. IRRADIATED RED BLOOD CELLS-LEUKOCYTES REDUCED [Concomitant]
     Active Substance: HUMAN RED BLOOD CELL
     Dosage: 4 U, UNK
     Route: 065
     Dates: start: 20160809, end: 20160809
  6. IRRADIATED RED BLOOD CELLS-LEUKOCYTES REDUCED [Concomitant]
     Active Substance: HUMAN RED BLOOD CELL
     Dosage: 4 U, UNK
     Route: 065
     Dates: start: 20160813, end: 20160813
  7. JAKAVI [Suspect]
     Active Substance: RUXOLITINIB
     Dosage: 10 MG, BID
     Route: 048
     Dates: start: 20160217, end: 20160328
  8. JAKAVI [Suspect]
     Active Substance: RUXOLITINIB
     Dosage: 15 MG, BID
     Route: 048
     Dates: start: 20160426, end: 20160708
  9. SPRYCEL [Concomitant]
     Active Substance: DASATINIB
     Indication: CHRONIC MYELOID LEUKAEMIA
     Dosage: 140 MG, UNK
     Route: 048
     Dates: start: 20160723, end: 20160729
  10. CYLOCIDE [Concomitant]
     Active Substance: CYTARABINE
     Indication: CHRONIC MYELOID LEUKAEMIA
     Dosage: UNK MG (PATIENT WAS TAKING 50 MG AND 100 MG), UNK
     Route: 065
     Dates: start: 20160730, end: 20160805
  11. SPRYCEL [Concomitant]
     Active Substance: DASATINIB
     Indication: CHRONIC MYELOID LEUKAEMIA
     Dosage: 140 MG, UNK
     Route: 048
     Dates: start: 20160723, end: 20160729
  12. HYDREA [Concomitant]
     Active Substance: HYDROXYUREA
     Dosage: 1000 MG, UNK
     Route: 048
     Dates: start: 20160723, end: 20160729
  13. DAUNOMYCIN                         /00128201/ [Concomitant]
     Active Substance: DAUNORUBICIN
     Indication: CHRONIC MYELOID LEUKAEMIA
     Dosage: 50 MG, UNK
     Route: 065
     Dates: start: 20160730, end: 20160803
  14. IRRADIATED RED BLOOD CELLS-LEUKOCYTES REDUCED [Concomitant]
     Active Substance: HUMAN RED BLOOD CELL
     Dosage: 4 U, UNK
     Route: 065
     Dates: start: 20160805, end: 20160805
  15. DAUNOMYCIN [Concomitant]
     Active Substance: DAUNORUBICIN
     Indication: CHRONIC MYELOID LEUKAEMIA
     Dosage: 50 MG, UNK
     Route: 065
     Dates: start: 20160730, end: 20160803
  16. IRRADIATED RED BLOOD CELLS-LEUKOCYTES REDUCED [Concomitant]
     Active Substance: HUMAN RED BLOOD CELL
     Indication: CHRONIC MYELOID LEUKAEMIA
     Dosage: 2 U, UNK
     Route: 065
     Dates: start: 20160705, end: 20160804
  17. IRRADIATED RED BLOOD CELLS-LEUKOCYTES REDUCED [Concomitant]
     Active Substance: HUMAN RED BLOOD CELL
     Dosage: 2 U, UNK
     Route: 065
     Dates: start: 20160807, end: 20160808
  18. IRRADIATED RED BLOOD CELLS-LEUKOCYTES REDUCED [Concomitant]
     Active Substance: HUMAN RED BLOOD CELL
     Dosage: 2 U, UNK
     Route: 065
     Dates: start: 20160812, end: 20160812
  19. IRRADIATED RED BLOOD CELLS-LEUKOCYTES REDUCED [Concomitant]
     Active Substance: HUMAN RED BLOOD CELL
     Dosage: 2 U, UNK
     Route: 065
     Dates: start: 20160819, end: 20160819
  20. IRRADIATED RED BLOOD CELLS-LEUKOCYTES REDUCED [Concomitant]
     Active Substance: HUMAN RED BLOOD CELL
     Dosage: 10 U, UNK
     Route: 065
     Dates: start: 20160805, end: 20160824
  21. PLATELET CONCENTRATE HLA(IRRADIATED) [Concomitant]
     Indication: CHRONIC MYELOID LEUKAEMIA
     Dosage: 10 U, UNK
     Route: 065
     Dates: start: 20160805, end: 20160824

REACTIONS (8)
  - Anaemia [Fatal]
  - Product use in unapproved indication [Unknown]
  - White blood cell count decreased [Unknown]
  - Disease progression [Fatal]
  - White blood cell count increased [Unknown]
  - Platelet count decreased [Fatal]
  - Drug ineffective [Unknown]
  - Muscle haemorrhage [Recovering/Resolving]

NARRATIVE: CASE EVENT DATE: 20160531
